FAERS Safety Report 19032848 (Version 1)
Quarter: 2021Q1

REPORT INFORMATION
  Report Type: Spontaneous
  Country: US (occurrence: US)
  Receive Date: 20210319
  Receipt Date: 20210319
  Transmission Date: 20210420
  Serious: Yes (Other)
  Sender: FDA-Public Use
  Company Number: US-ASTRAZENECA-2021A145616

PATIENT
  Age: 28542 Day
  Sex: Female
  Weight: 108.9 kg

DRUGS (5)
  1. TESSALON [Concomitant]
     Active Substance: BENZONATATE
     Indication: DYSPNOEA
     Dosage: UNKNOWN
  2. FASENRA [Suspect]
     Active Substance: BENRALIZUMAB
     Indication: DYSPNOEA
     Dosage: 30.0MG/ML UNKNOWN
     Route: 058
  3. FASENRA [Suspect]
     Active Substance: BENRALIZUMAB
     Indication: ASTHMA
     Dosage: 30.0MG/ML UNKNOWN
     Route: 058
  4. MEDROL DOSE PACK [Concomitant]
     Active Substance: METHYLPREDNISOLONE
     Dosage: UNKNOWN
  5. TESSALON [Concomitant]
     Active Substance: BENZONATATE
     Indication: ASTHMA
     Dosage: UNKNOWN

REACTIONS (2)
  - Upper respiratory tract infection [Unknown]
  - Dyspnoea [Unknown]

NARRATIVE: CASE EVENT DATE: 20210305
